FAERS Safety Report 17912575 (Version 2)
Quarter: 2020Q4

REPORT INFORMATION
  Report Type: Spontaneous
  Country: US (occurrence: US)
  Receive Date: 20200618
  Receipt Date: 20201214
  Transmission Date: 20210113
  Serious: No
  Sender: FDA-Public Use
  Company Number: US-009507513-2006USA006692

PATIENT
  Age: 27 Year
  Sex: Female
  Weight: 119.73 kg

DRUGS (1)
  1. NEXPLANON [Suspect]
     Active Substance: ETONOGESTREL
     Dosage: 1 ROD EVERY 3 YEARS; LEFT UPPER ARM (PATIENT^S DOMINANT ARM: NO); OVER THE TRICEPS MUSCLE APPROXIMAT
     Route: 059
     Dates: start: 20200610

REACTIONS (2)
  - No adverse event [Unknown]
  - Device expulsion [Recovered/Resolved]

NARRATIVE: CASE EVENT DATE: 20200615
